FAERS Safety Report 20324514 (Version 1)
Quarter: 2022Q1

REPORT INFORMATION
  Report Type: Spontaneous
  Country: None (occurrence: FR)
  Receive Date: 20220111
  Receipt Date: 20220111
  Transmission Date: 20220423
  Serious: Yes (Other)
  Sender: FDA-Public Use
  Company Number: FR-AFSSAPS-BX202111201

PATIENT
  Age: 41 Year
  Sex: Male
  Weight: 155 kg

DRUGS (1)
  1. OXYGEN [Suspect]
     Active Substance: OXYGEN
     Indication: Chronic obstructive pulmonary disease
     Route: 045
     Dates: start: 20210607

REACTIONS (1)
  - Burns second degree [Recovering/Resolving]

NARRATIVE: CASE EVENT DATE: 20211011
